FAERS Safety Report 11613776 (Version 1)
Quarter: 2015Q4

REPORT INFORMATION
  Report Type: Spontaneous
  Country: ES (occurrence: ES)
  Receive Date: 20151008
  Receipt Date: 20151008
  Transmission Date: 20160304
  Serious: Yes (Other)
  Sender: FDA-Public Use
  Company Number: ES-ASTRAZENECA-2015SE96200

PATIENT

DRUGS (2)
  1. BRILIQUE [Suspect]
     Active Substance: TICAGRELOR
     Indication: ACUTE CORONARY SYNDROME
     Route: 048
  2. BIVALIRUDIN. [Suspect]
     Active Substance: BIVALIRUDIN
     Indication: ACUTE CORONARY SYNDROME
     Route: 065

REACTIONS (1)
  - Vascular stent thrombosis [Unknown]
